APPROVED DRUG PRODUCT: PIPERACILLIN
Active Ingredient: PIPERACILLIN SODIUM
Strength: EQ 40GM BASE/VIAL
Dosage Form/Route: INJECTABLE;INJECTION
Application: A065157 | Product #001
Applicant: ISTITUTO BIOCHIMICO ITALIANO SPA
Approved: Jul 12, 2004 | RLD: No | RS: Yes | Type: RX